FAERS Safety Report 18513414 (Version 4)
Quarter: 2021Q2

REPORT INFORMATION
  Report Type: Spontaneous
  Country: US (occurrence: US)
  Receive Date: 20201117
  Receipt Date: 20210611
  Transmission Date: 20210717
  Serious: No
  Sender: FDA-Public Use
  Company Number: US-PFIZER INC-2020401534

PATIENT
  Age: 60 Year
  Sex: Female

DRUGS (3)
  1. LYRICA [Concomitant]
     Active Substance: PREGABALIN
     Indication: PAIN IN EXTREMITY
  2. XELJANZ XR [Suspect]
     Active Substance: TOFACITINIB CITRATE
     Indication: RHEUMATOID ARTHRITIS
     Dosage: 11 MG, DAILY
     Route: 048
     Dates: start: 20201009
  3. LYRICA [Concomitant]
     Active Substance: PREGABALIN
     Indication: BACK PAIN
     Dosage: UNK
     Dates: start: 2021

REACTIONS (8)
  - Pain in extremity [Recovered/Resolved]
  - Arthralgia [Unknown]
  - Pelvic pain [Unknown]
  - Abdominal pain [Unknown]
  - Product dose omission issue [Unknown]
  - Anxiety [Unknown]
  - Condition aggravated [Unknown]
  - Musculoskeletal stiffness [Recovering/Resolving]
